FAERS Safety Report 20361950 (Version 1)
Quarter: 2022Q1

REPORT INFORMATION
  Report Type: Spontaneous
  Country: DE (occurrence: DE)
  Receive Date: 20220121
  Receipt Date: 20220121
  Transmission Date: 20220424
  Serious: Yes (Other)
  Sender: FDA-Public Use
  Company Number: None

PATIENT
  Age: 54 Year
  Sex: Female
  Weight: 73 kg

DRUGS (2)
  1. CLARITHROMYCIN [Suspect]
     Active Substance: CLARITHROMYCIN
     Indication: Helicobacter gastritis
     Dosage: 2 DOSAGE FORMS DAILY; 2 TABLETS DAILY FOR 10 DAYS. SO 4 TABLETS OF BOTH DRUGS PER DAY.
     Route: 048
     Dates: start: 20210819, end: 20210828
  2. METRONIDAZOLE [Suspect]
     Active Substance: METRONIDAZOLE
     Indication: Helicobacter gastritis
     Dosage: 2 DOSAGE FORMS DAILY; 2 TABLETS DAILY FOR 10 DAYS. SO 4 TABLETS OF BOTH DRUGS PER DAY, METRONIDAZOL
     Route: 048
     Dates: start: 20210819, end: 20210828

REACTIONS (14)
  - Mental impairment [Recovered/Resolved]
  - Amnesia [Unknown]
  - Dizziness [Recovered/Resolved]
  - Nightmare [Unknown]
  - Tremor [Recovered/Resolved]
  - Tinnitus [Unknown]
  - Coordination abnormal [Recovered/Resolved]
  - Restlessness [Unknown]
  - Insomnia [Recovered/Resolved]
  - On and off phenomenon [Recovered/Resolved]
  - Disorientation [Recovered/Resolved]
  - Panic disorder [Unknown]
  - Nausea [Unknown]
  - Respiratory depth decreased [Unknown]

NARRATIVE: CASE EVENT DATE: 20210822
